FAERS Safety Report 5984366-7 (Version None)
Quarter: 2008Q4

REPORT INFORMATION
  Report Type: 
  Country: None (occurrence: None)
  Receive Date: 20081208
  Receipt Date: 20081201
  Transmission Date: 20090506
  Serious: Yes (Life-Threatening)
  Sender: FDA-Public Use
  Company Number: PHHY2008GB26130

PATIENT
  Age: 61 Year
  Sex: Female

DRUGS (7)
  1. LETROZOLE [Suspect]
  2. DOCETAXEL [Suspect]
     Dosage: 100 MG/M2
     Dates: end: 20061101
  3. CYCLOPHOSPHAMIDE [Suspect]
     Dosage: UNK
     Route: 042
     Dates: start: 20060601, end: 20060901
  4. EPIRUBICIN [Suspect]
     Route: 042
  5. NEULASTA [Suspect]
     Route: 042
  6. FLUOROURACIL [Suspect]
     Route: 042
  7. CHEMOTHERAPEUTICS NOS [Concomitant]

REACTIONS (2)
  - COMA [None]
  - PROGRESSIVE MULTIFOCAL LEUKOENCEPHALOPATHY [None]
